FAERS Safety Report 9099659 (Version 4)
Quarter: 2013Q3

REPORT INFORMATION
  Report Type: Report from Study
  Country: CA (occurrence: CA)
  Receive Date: 20130214
  Receipt Date: 20130918
  Transmission Date: 20140515
  Serious: Yes (Other)
  Sender: FDA-Public Use
  Company Number: CA-ROCHE-1131743

PATIENT
  Age: 69 Year
  Sex: Male
  Weight: 88.9 kg

DRUGS (24)
  1. RITUXAN [Suspect]
     Indication: RHEUMATOID ARTHRITIS
     Dosage: PREVIOUS RITUXAN DOSE: 03/APR/2013.
     Route: 042
     Dates: start: 20120216
  2. METHOTREXATE [Concomitant]
     Route: 065
  3. PLAQUENIL [Concomitant]
     Route: 065
  4. MOBICOX [Concomitant]
     Route: 065
  5. ACTONEL [Concomitant]
     Route: 065
  6. LANTUS [Concomitant]
     Indication: DIABETES MELLITUS
  7. COVERSYL [Concomitant]
  8. NOVORAPID [Concomitant]
     Dosage: PRN AT MEALS
     Route: 065
  9. LIPITOR [Concomitant]
  10. NORVASC [Concomitant]
  11. PREVACID [Concomitant]
  12. ELTROXIN [Concomitant]
  13. ADVAIR [Concomitant]
  14. SPIRIVA [Concomitant]
  15. HYDROMORPHONE [Concomitant]
     Route: 048
  16. FOLIC ACID [Concomitant]
  17. ASA [Concomitant]
     Route: 065
  18. SALMON OIL [Concomitant]
  19. ECHINACEA [Concomitant]
     Dosage: PRN
     Route: 065
  20. VITAMIN C [Concomitant]
  21. VENTOLIN [Concomitant]
  22. DIPHENHYDRAMINE HCL [Concomitant]
     Indication: PREMEDICATION
     Route: 048
     Dates: start: 20120216
  23. ACETAMINOPHEN [Concomitant]
     Indication: PREMEDICATION
     Route: 048
     Dates: start: 20120216
  24. METHYLPREDNISOLONE [Concomitant]
     Indication: PREMEDICATION
     Route: 042
     Dates: start: 20120216

REACTIONS (3)
  - Blood pressure decreased [Not Recovered/Not Resolved]
  - Squamous cell carcinoma [Unknown]
  - Prostatomegaly [Unknown]
